FAERS Safety Report 25929626 (Version 1)
Quarter: 2025Q4

REPORT INFORMATION
  Report Type: Spontaneous
  Country: US (occurrence: None)
  Receive Date: 20251015
  Receipt Date: 20251015
  Transmission Date: 20260118
  Serious: No
  Sender: FDA-CTU
  Company Number: None

PATIENT
  Age: 64 Year
  Sex: Male

DRUGS (1)
  1. LENALIDOMIDE [Suspect]
     Active Substance: LENALIDOMIDE
     Indication: Plasma cell myeloma
     Dosage: 25MG QD ORAL
     Route: 048
     Dates: start: 20250922

REACTIONS (6)
  - Palpitations [None]
  - Tachycardia [None]
  - Transient ischaemic attack [None]
  - Paraesthesia [None]
  - Blindness transient [None]
  - Rash [None]

NARRATIVE: CASE EVENT DATE: 20250924
